FAERS Safety Report 5634546-5 (Version None)
Quarter: 2008Q1

REPORT INFORMATION
  Report Type: 
  Country: None (occurrence: None)
  Receive Date: 20080222
  Receipt Date: 20080213
  Transmission Date: 20080703
  Serious: Yes (Other)
  Sender: FDA-Public Use
  Company Number: PHHY2008AU01702

PATIENT
  Sex: Female

DRUGS (2)
  1. ESTALIS CONTINUOUS [Suspect]
     Dosage: 50/140
  2. ESTALIS SEQUI [Suspect]
     Indication: HORMONE REPLACEMENT THERAPY
     Dosage: 50/140 UNK
     Route: 062

REACTIONS (2)
  - ASTHMA [None]
  - PALPITATIONS [None]
